FAERS Safety Report 9616807 (Version 5)
Quarter: 2014Q1

REPORT INFORMATION
  Report Type: Spontaneous
  Country: CN (occurrence: CN)
  Receive Date: 20131011
  Receipt Date: 20140128
  Transmission Date: 20141002
  Serious: Yes (Death, Other)
  Sender: FDA-Public Use
  Company Number: CN-NAPPMUNDI-GBR-2013-0015969

PATIENT
  Age: 49 Year
  Sex: Male

DRUGS (10)
  1. OXYCONTIN TABLETS [Suspect]
     Indication: CANCER PAIN
     Dosage: 100 MG, Q12H
     Route: 048
  2. OXYCONTIN TABLETS [Suspect]
     Dosage: 120 MG Q12H
     Route: 048
  3. OXYCONTIN TABLETS [Suspect]
     Dosage: 100 MG Q12H
     Route: 048
  4. OXYCONTIN TABLETS [Suspect]
     Dosage: 80 MG, Q12H
     Route: 048
  5. OXYCONTIN TABLETS [Suspect]
     Dosage: 60 MG, Q12H
     Route: 048
     Dates: start: 20130911
  6. OXYCONTIN TABLETS [Suspect]
     Dosage: 40 MG, Q12H
     Route: 048
     Dates: start: 20130910, end: 20130910
  7. OXYCONTIN TABLETS [Suspect]
     Dosage: 20 MG, Q12H
     Route: 048
     Dates: start: 20130907, end: 20130909
  8. CISPLATIN W/DOCETAXEL [Concomitant]
     Indication: CHEMOTHERAPY
     Dosage: 30 MG, DAY 1-4 / 120 MG DAY 1
     Dates: end: 20130605
  9. MORPHINE                           /00036302/ [Concomitant]
     Indication: BREAKTHROUGH PAIN
     Dosage: 10 MG, UNK
     Route: 030
     Dates: start: 20130911
  10. MORPHINE [Concomitant]
     Indication: PAIN
     Dosage: 10 MG, UNK
     Route: 048
     Dates: start: 20130911

REACTIONS (8)
  - Malignant neoplasm progression [Fatal]
  - Dyspnoea [Unknown]
  - Confusional state [Recovering/Resolving]
  - Respiratory depression [Recovering/Resolving]
  - Breakthrough pain [Recovering/Resolving]
  - Constipation [Not Recovered/Not Resolved]
  - Drug ineffective [Unknown]
  - Miosis [Unknown]
